FAERS Safety Report 13961258 (Version 5)
Quarter: 2018Q3

REPORT INFORMATION
  Report Type: Report from Study
  Country: AR (occurrence: AR)
  Receive Date: 20170912
  Receipt Date: 20180727
  Transmission Date: 20181010
  Serious: Yes (Other)
  Sender: FDA-Public Use
  Company Number: AR-BAYER-2017-168533

PATIENT
  Age: 69 Year
  Sex: Male

DRUGS (1)
  1. NEXAVAR [Suspect]
     Active Substance: SORAFENIB
     Indication: HEPATOCELLULAR CARCINOMA
     Dosage: 4 DF, UNK
     Route: 048
     Dates: start: 201506

REACTIONS (11)
  - Limb injury [Recovering/Resolving]
  - Adverse drug reaction [Unknown]
  - Muscle spasms [Not Recovered/Not Resolved]
  - Mobility decreased [Recovering/Resolving]
  - Atrophy [None]
  - Paralysis [Recovering/Resolving]
  - Monoplegia [Not Recovered/Not Resolved]
  - Asthenia [Not Recovered/Not Resolved]
  - Urinary incontinence [Recovering/Resolving]
  - Blood pressure increased [Recovering/Resolving]
  - Feeling of despair [Recovering/Resolving]

NARRATIVE: CASE EVENT DATE: 201803
